FAERS Safety Report 20226907 (Version 1)
Quarter: 2021Q4

REPORT INFORMATION
  Report Type: Spontaneous
  Country: US (occurrence: US)
  Receive Date: 20211224
  Receipt Date: 20211224
  Transmission Date: 20220303
  Serious: Yes (Death, Hospitalization, Other)
  Sender: FDA-Public Use
  Company Number: US-009507513-2112USA003405

PATIENT
  Sex: Male
  Weight: 77.6 kg

DRUGS (4)
  1. SINGULAIR [Suspect]
     Active Substance: MONTELUKAST SODIUM
     Dosage: 1 TABLET EVERY NIGHT
     Route: 048
     Dates: start: 20200901
  2. LUPRON [Concomitant]
     Active Substance: LEUPROLIDE ACETATE
     Dosage: UNK
     Dates: start: 20111121
  3. KEYTRUDA [Suspect]
     Active Substance: PEMBROLIZUMAB
     Dosage: 200 MILLIGRAM/21 DAYS
     Dates: start: 20201207
  4. OLAPARIB [Suspect]
     Active Substance: OLAPARIB
     Dosage: 2 TABLETS (300 MG TOTAL) EVERY 12 HOURS
     Route: 048
     Dates: start: 20200713, end: 20210412

REACTIONS (22)
  - Death [Fatal]
  - Optic neuritis [Recovering/Resolving]
  - Prostate cancer recurrent [Unknown]
  - Urosepsis [Unknown]
  - Respiratory failure [Unknown]
  - Pulmonary embolism [Unknown]
  - Intestinal mass [Unknown]
  - Vision blurred [Recovering/Resolving]
  - Ischaemia [Unknown]
  - Hypotension [Unknown]
  - Dyslipidaemia [Unknown]
  - Osteoarthritis [Unknown]
  - Hot flush [Unknown]
  - Breast enlargement [Unknown]
  - Blister [Unknown]
  - Anaemia [Unknown]
  - Veillonella test positive [Unknown]
  - Enterococcus test positive [Unknown]
  - Oedema peripheral [Not Recovered/Not Resolved]
  - Wound [Not Recovered/Not Resolved]
  - Malaise [Unknown]
  - Fatigue [Unknown]

NARRATIVE: CASE EVENT DATE: 20200101
